FAERS Safety Report 6073262-5 (Version None)
Quarter: 2009Q1

REPORT INFORMATION
  Report Type: 
  Country: None (occurrence: None)
  Receive Date: 20090211
  Receipt Date: 20090130
  Transmission Date: 20090719
  Serious: Yes (Hospitalization, Other)
  Sender: FDA-Public Use
  Company Number: AT-SANOFI-SYNTHELABO-F01200800411

PATIENT

DRUGS (4)
  1. CETUXIMAB [Suspect]
     Route: 041
  2. FOLINIC ACID [Suspect]
     Route: 041
  3. FLUOROURACIL [Suspect]
     Route: 041
  4. OXALIPLATIN [Suspect]
     Indication: COLON CANCER
     Route: 041

REACTIONS (3)
  - CHOLECYSTITIS [None]
  - DIARRHOEA [None]
  - PNEUMONIA [None]
